FAERS Safety Report 5339866-X (Version None)
Quarter: 2007Q2

REPORT INFORMATION
  Report Type: 
  Country: None (occurrence: None)
  Receive Date: 20070529
  Receipt Date: 20070518
  Transmission Date: 20071010
  Serious: Yes (Life-Threatening, Hospitalization)
  Sender: FDA-Public Use
  Company Number: E2090-00225-SPO-JP

PATIENT
  Age: 51 Year
  Sex: Male

DRUGS (5)
  1. ZONISAMIDE [Suspect]
     Indication: CEREBRAL HAEMORRHAGE
     Dosage: 200 MG, 2 IN 1 D; ORAL
     Route: 048
     Dates: start: 20070104, end: 20070207
  2. DIOVAN [Suspect]
     Indication: HYPERTENSION
     Dosage: 1 IN 1 D; ORAL
     Route: 048
     Dates: start: 20061231, end: 20070317
  3. TAKEPRON (LANSOPRAZOLE) (LANSOPRAZOLE) [Concomitant]
  4. NI (MAGNESIUM OXIDE ) (MAGNESIUM OXIDE) [Concomitant]
  5. PURSENNID (SENNOSIDE) (SENNA LEAF) [Concomitant]

REACTIONS (5)
  - ALANINE AMINOTRANSFERASE INCREASED [None]
  - BLOOD LACTATE DEHYDROGENASE INCREASED [None]
  - DRUG ERUPTION [None]
  - NO THERAPEUTIC RESPONSE [None]
  - TOXIC EPIDERMAL NECROLYSIS [None]
